FAERS Safety Report 12954161 (Version 1)
Quarter: 2016Q4

REPORT INFORMATION
  Report Type: Spontaneous
  Country: US (occurrence: US)
  Receive Date: 20161118
  Receipt Date: 20161118
  Transmission Date: 20170207
  Serious: Yes (Hospitalization, Other)
  Sender: FDA-Public Use
  Company Number: US-ASTRAZENECA-2016SF22044

PATIENT
  Age: 96 Year
  Sex: Female

DRUGS (2)
  1. SEROQUEL [Suspect]
     Active Substance: QUETIAPINE FUMARATE
     Indication: HALLUCINATION
     Route: 048
     Dates: start: 2016, end: 2016
  2. IMIPRAMINE HCL [Concomitant]
     Active Substance: IMIPRAMINE HYDROCHLORIDE
     Indication: BLADDER DISORDER
     Dosage: 10.0MG UNKNOWN
     Route: 048
     Dates: start: 2015

REACTIONS (3)
  - Wound [Unknown]
  - Fall [Unknown]
  - Urinary tract infection [Unknown]
